FAERS Safety Report 6383655-4 (Version None)
Quarter: 2009Q3

REPORT INFORMATION
  Report Type: 
  Country: None (occurrence: None)
  Receive Date: 20090928
  Receipt Date: 20090922
  Transmission Date: 20100115
  Serious: Yes (Life-Threatening, Other)
  Sender: FDA-Public Use
  Company Number: 2009AL006190

PATIENT
  Age: 1 Year
  Sex: Male

DRUGS (2)
  1. FEVERALL [Suspect]
     Indication: PYREXIA
     Dosage: 150 MG
  2. IBUPROFEN [Suspect]
     Indication: PYREXIA
     Dosage: 75 MG; PO
     Route: 048
     Dates: start: 20040403, end: 20040404

REACTIONS (1)
  - HYPOTHERMIA [None]
